FAERS Safety Report 8718385 (Version 3)
Quarter: 2013Q4

REPORT INFORMATION
  Report Type: Spontaneous
  Country: US (occurrence: US)
  Receive Date: 20120810
  Receipt Date: 20131101
  Transmission Date: 20140711
  Serious: Yes (Life-Threatening, Hospitalization, Other)
  Sender: FDA-Public Use
  Company Number: US-009507513-1208USA003404

PATIENT
  Sex: Female

DRUGS (8)
  1. PEGINTRON [Suspect]
     Indication: HEPATITIS C
     Dosage: 80 MICROGRAMS PER 0.5 ML INJECTION QW
     Route: 058
     Dates: start: 20120427, end: 20120803
  2. REBETOL [Suspect]
     Indication: HEPATITIS C
     Dosage: 800 MG, UNK
     Route: 048
     Dates: start: 20120427
  3. REBETOL [Suspect]
     Dosage: 600 MG, UNK
     Route: 048
     Dates: end: 20120803
  4. CELEXA [Concomitant]
  5. CLONAZEPAM [Concomitant]
  6. NICOTINE [Concomitant]
  7. OXYCODONE [Concomitant]
  8. NEUROXIN (CYANOCOBALAMIN (+) PYRIDOXINE HYDROCHLORIDE (+) THIAMINE HYD [Concomitant]

REACTIONS (2)
  - Suicidal ideation [Not Recovered/Not Resolved]
  - Anaemia [Not Recovered/Not Resolved]
